FAERS Safety Report 4554793-3 (Version None)
Quarter: 2005Q1

REPORT INFORMATION
  Report Type: 
  Country: None (occurrence: None)
  Receive Date: 20050118
  Receipt Date: 20050106
  Transmission Date: 20050727
  Serious: Yes (Death)
  Sender: FDA-Public Use
  Company Number: US-JNJFOC-20050101503

PATIENT
  Age: 45 Year
  Sex: Male

DRUGS (6)
  1. TOPAMAX [Suspect]
  2. LIPITOR [Concomitant]
  3. LEVOXYL [Concomitant]
     Indication: HYPOTHYROIDISM
  4. TEGRETOL [Concomitant]
  5. LEXAPRO [Concomitant]
     Indication: OBSESSIVE-COMPULSIVE DISORDER
  6. PRINIVIL [Concomitant]
     Indication: HYPERTENSION

REACTIONS (1)
  - CONVULSION [None]
